FAERS Safety Report 6862164-X (Version None)
Quarter: 2010Q3

REPORT INFORMATION
  Report Type: 
  Country: None (occurrence: None)
  Receive Date: 20100721
  Receipt Date: 20100715
  Transmission Date: 20110219
  Serious: Yes (Hospitalization, Other)
  Sender: FDA-Public Use
  Company Number: US-SANOFI-AVENTIS-2010SA022408

PATIENT
  Age: 72 Year
  Sex: Female
  Weight: 76.8 kg

DRUGS (16)
  1. PLAVIX [Suspect]
     Route: 048
     Dates: start: 20090401
  2. NORVASC [Concomitant]
  3. THYROID TAB [Concomitant]
  4. POTASSIUM CHLORIDE [Concomitant]
  5. FUROSEMIDE [Concomitant]
  6. FLEXERIL [Concomitant]
  7. COZAAR [Concomitant]
  8. VYTORIN [Concomitant]
     Dosage: 10/20 TAB
  9. ASPIRIN [Concomitant]
  10. NITROGLYCERIN [Concomitant]
  11. ADVAIR DISKUS 100/50 [Concomitant]
  12. ACIPHEX [Concomitant]
  13. LEVOTHYROXINE SODIUM [Concomitant]
  14. NEXIUM [Concomitant]
  15. ZANTAC [Concomitant]
  16. BUDESONIDE [Concomitant]

REACTIONS (10)
  - CHRONIC OBSTRUCTIVE PULMONARY DISEASE [None]
  - COUGH [None]
  - DYSGEUSIA [None]
  - DYSPHAGIA [None]
  - DYSPNOEA [None]
  - FALL [None]
  - GASTROOESOPHAGEAL REFLUX DISEASE [None]
  - LUNG NEOPLASM [None]
  - LUNG NEOPLASM MALIGNANT [None]
  - PAIN [None]
